FAERS Safety Report 5229400-7 (Version None)
Quarter: 2007Q1

REPORT INFORMATION
  Report Type: 
  Country: None (occurrence: None)
  Receive Date: 20070131
  Receipt Date: 20070122
  Transmission Date: 20070707
  Serious: Yes (Other)
  Sender: FDA-Public Use
  Company Number: 163-21880-07011190

PATIENT
  Age: 79 Year
  Sex: Female

DRUGS (1)
  1. REVLIMID [Suspect]
     Indication: MYELODYSPLASTIC SYNDROME
     Dosage: 10 MG, 2 IN 1 D, ORAL
     Route: 048
     Dates: start: 20060201

REACTIONS (2)
  - LOWER LIMB FRACTURE [None]
  - WEIGHT DECREASED [None]
